FAERS Safety Report 6462388-X (Version None)
Quarter: 2009Q4

REPORT INFORMATION
  Report Type: 
  Country: None (occurrence: None)
  Receive Date: 20091130
  Receipt Date: 20091030
  Transmission Date: 20100525
  Serious: No
  Sender: FDA-Public Use
  Company Number: US-BAYER-200938405NA

PATIENT
  Age: 53 Year
  Sex: Female
  Weight: 57 kg

DRUGS (2)
  1. CIPRO [Suspect]
     Indication: BLOOD URINE PRESENT
     Dosage: UNIT DOSE: 500 MG
     Dates: start: 20091028
  2. CIPRO [Suspect]
     Dosage: UNIT DOSE: 500 MG
     Dates: start: 20091029

REACTIONS (4)
  - ASTHENIA [None]
  - FATIGUE [None]
  - HYPOAESTHESIA [None]
  - HYPOAESTHESIA FACIAL [None]
